FAERS Safety Report 18415156 (Version 1)
Quarter: 2020Q4

REPORT INFORMATION
  Report Type: Spontaneous
  Country: US (occurrence: US)
  Receive Date: 20201022
  Receipt Date: 20201022
  Transmission Date: 20210114
  Serious: Yes (Other)
  Sender: FDA-Public Use
  Company Number: US-BAYER-2020-221792

PATIENT
  Age: 50 Year
  Sex: Female

DRUGS (5)
  1. PROVENTIL [Suspect]
     Active Substance: ALBUTEROL
  2. ALKA-SELTZER PLUS DAY NON DROWSY COLD MEDICINE CITRUS [Suspect]
     Active Substance: ASPIRIN\DEXTROMETHORPHAN HYDROBROMIDE\PHENYLEPHRINE BITARTRATE
     Indication: SLEEP DISORDER
     Dosage: 1 DF, HS
     Route: 048
     Dates: start: 20201006
  3. ALBUTEROL [SALBUTAMOL] [Suspect]
     Active Substance: ALBUTEROL
  4. AMBIEN [Suspect]
     Active Substance: ZOLPIDEM TARTRATE
  5. SYMBICORT [Suspect]
     Active Substance: BUDESONIDE\FORMOTEROL FUMARATE DIHYDRATE

REACTIONS (5)
  - Incorrect dose administered [None]
  - Product use in unapproved indication [None]
  - Drug dependence [Unknown]
  - Insomnia [Unknown]
  - Drug effective for unapproved indication [Unknown]
